FAERS Safety Report 8248737-0 (Version None)
Quarter: 2012Q1

REPORT INFORMATION
  Report Type: 
  Country: None (occurrence: None)
  Receive Date: 20120331
  Receipt Date: 20120327
  Transmission Date: 20120608
  Serious: Yes (Hospitalization, Other)
  Sender: FDA-Public Use
  Company Number: PHHY2011US17606

PATIENT
  Sex: Female

DRUGS (4)
  1. GILENYA [Suspect]
     Dosage: 0.5 MG, QOD
     Route: 048
     Dates: start: 20110228, end: 20120211
  2. MECLIZINE [Concomitant]
     Indication: DIZZINESS
  3. GILENYA [Suspect]
     Indication: MULTIPLE SCLEROSIS
     Dosage: 0.5 MG, QD
     Route: 048
     Dates: start: 20110111, end: 20110215
  4. BACLOFEN [Concomitant]
     Indication: MUSCLE SPASMS

REACTIONS (4)
  - HYPERTENSION [None]
  - PALPITATIONS [None]
  - CHEST DISCOMFORT [None]
  - DYSPNOEA [None]
